FAERS Safety Report 19674161 (Version 1)
Quarter: 2021Q3

REPORT INFORMATION
  Report Type: Spontaneous
  Country: US (occurrence: US)
  Receive Date: 20210809
  Receipt Date: 20210809
  Transmission Date: 20211014
  Serious: Yes (Life-Threatening, Hospitalization, Other)
  Sender: FDA-Public Use
  Company Number: US-EPICPHARMA-US-2021EPCLIT00828

PATIENT
  Age: 48 Year
  Sex: Female

DRUGS (4)
  1. ISOPROTERENOL [ISOPRENALINE] [Interacting]
     Active Substance: ISOPROTERENOL
     Indication: VENTRICULAR TACHYCARDIA
     Route: 065
  2. METHADONE HYDROCHLORIDE. [Suspect]
     Active Substance: METHADONE HYDROCHLORIDE
     Indication: PRODUCT USED FOR UNKNOWN INDICATION
     Route: 065
  3. METHADONE HYDROCHLORIDE. [Suspect]
     Active Substance: METHADONE HYDROCHLORIDE
     Route: 065
  4. MAGNESIUM [Interacting]
     Active Substance: MAGNESIUM
     Indication: VENTRICULAR TACHYCARDIA
     Route: 065

REACTIONS (4)
  - Toxicity to various agents [Recovering/Resolving]
  - Ventricular tachycardia [Recovering/Resolving]
  - Stress cardiomyopathy [Recovering/Resolving]
  - Accidental overdose [Recovering/Resolving]
